FAERS Safety Report 25206832 (Version 1)
Quarter: 2025Q2

REPORT INFORMATION
  Report Type: Spontaneous
  Country: ES (occurrence: ES)
  Receive Date: 20250417
  Receipt Date: 20250417
  Transmission Date: 20250717
  Serious: No
  Sender: ALKEM
  Company Number: ES-ALKEM LABORATORIES LIMITED-ES-ALKEM-2025-02860

PATIENT
  Age: 69 Year
  Sex: Male

DRUGS (1)
  1. NIFEDIPINE [Suspect]
     Active Substance: NIFEDIPINE
     Indication: Hypertension
     Dosage: 40 MILLIGRAM, QD
     Route: 065

REACTIONS (1)
  - Myoclonus [Recovered/Resolved]
